FAERS Safety Report 11262017 (Version 1)
Quarter: 2015Q3

REPORT INFORMATION
  Report Type: Spontaneous
  Country: US (occurrence: US)
  Receive Date: 20150710
  Receipt Date: 20150710
  Transmission Date: 20151125
  Serious: No
  Sender: FDA-Public Use
  Company Number: US-PURDUE-USA-2015-0122654

PATIENT
  Sex: Female

DRUGS (2)
  1. BUTRANS [Suspect]
     Active Substance: BUPRENORPHINE
     Indication: CANCER PAIN
     Dosage: UNK MCG/HR, WEEKLY
     Route: 062
  2. LIDODERM [Suspect]
     Active Substance: LIDOCAINE
     Indication: CANCER PAIN
     Route: 062

REACTIONS (1)
  - Hypertension [Unknown]
